FAERS Safety Report 8935275 (Version 2)
Quarter: 2013Q1

REPORT INFORMATION
  Report Type: Spontaneous
  Country: BR (occurrence: BR)
  Receive Date: 20121129
  Receipt Date: 20130307
  Transmission Date: 20140127
  Serious: Yes (Hospitalization, Disabling, Other)
  Sender: FDA-Public Use
  Company Number: BR-ASTRAZENECA-2012SE88457

PATIENT
  Age: 89 Year
  Sex: Female

DRUGS (2)
  1. SYMBICORT TURBUHALER [Suspect]
     Indication: LUNG DISORDER
     Dosage: 320/9 MCG, UNKNOWN
     Route: 055
     Dates: end: 201209
  2. SYMBICORT TURBUHALER [Suspect]
     Indication: LUNG DISORDER
     Dosage: VANNAIR, 160/4.5 MCG, UNKNOWN
     Route: 055
     Dates: end: 201302

REACTIONS (2)
  - Skin cancer [Recovered/Resolved]
  - Circumstance or information capable of leading to medication error [Not Recovered/Not Resolved]
